FAERS Safety Report 7947111-1 (Version None)
Quarter: 2011Q4

REPORT INFORMATION
  Report Type: 
  Country: None (occurrence: None)
  Receive Date: 20111129
  Receipt Date: 20111118
  Transmission Date: 20120403
  Serious: Yes (Other)
  Sender: FDA-Public Use
  Company Number: US-ROCHE-792919

PATIENT
  Sex: Male
  Weight: 79.45 kg

DRUGS (3)
  1. DEPAKOTE [Concomitant]
  2. LITHIUM [Concomitant]
  3. ACCUTANE [Suspect]
     Indication: ACNE
     Route: 065
     Dates: start: 19980928, end: 19990708

REACTIONS (8)
  - CROHN'S DISEASE [None]
  - SUICIDAL IDEATION [None]
  - IRRITABLE BOWEL SYNDROME [None]
  - RASH [None]
  - INFLAMMATORY BOWEL DISEASE [None]
  - DEPRESSION [None]
  - EPISTAXIS [None]
  - INTESTINAL HAEMORRHAGE [None]
